FAERS Safety Report 16568549 (Version 1)
Quarter: 2019Q3

REPORT INFORMATION
  Report Type: Spontaneous
  Country: US (occurrence: US)
  Receive Date: 20190712
  Receipt Date: 20190712
  Transmission Date: 20191004
  Serious: No
  Sender: FDA-Public Use
  Company Number: PHEH2019US028758

PATIENT
  Sex: Male

DRUGS (1)
  1. ALCLOMETASONE [Suspect]
     Active Substance: ALCLOMETASONE
     Indication: ROSACEA
     Dosage: 0.05 UNK, UNK
     Route: 061

REACTIONS (1)
  - Rosacea [Unknown]
